FAERS Safety Report 19460293 (Version 1)
Quarter: 2021Q2

REPORT INFORMATION
  Report Type: Spontaneous
  Country: PL (occurrence: PL)
  Receive Date: 20210625
  Receipt Date: 20210625
  Transmission Date: 20210717
  Serious: Yes (Other)
  Sender: FDA-Public Use
  Company Number: PL-TEVA-2021-PL-1925435

PATIENT
  Age: 63 Year
  Sex: Female
  Weight: 63 kg

DRUGS (3)
  1. CALCII FOLINAS PENTAHYDRICUS [Suspect]
     Active Substance: LEUCOVORIN CALCIUM PENTAHYDRATE
     Indication: COLON CANCER
     Dosage: UNIT DOSE: 338 MG
     Route: 042
     Dates: start: 20171025, end: 20171027
  2. 5?FLUOROURACIL?EBEWE [Suspect]
     Active Substance: FLUOROURACIL
     Indication: COLON CANCER
     Dosage: UNIT DOSE: 1690 MG
     Route: 042
     Dates: start: 20171025, end: 20171027
  3. OXALIPLATINUM ACCORD [Suspect]
     Active Substance: OXALIPLATIN
     Indication: COLON CANCER
     Dosage: UNIT DOSE: 143.6 MG
     Route: 042
     Dates: start: 20171025, end: 20171025

REACTIONS (2)
  - Neutropenia [Unknown]
  - Thrombocytopenia [Unknown]

NARRATIVE: CASE EVENT DATE: 20171108
